FAERS Safety Report 4317006-3 (Version None)
Quarter: 2004Q1

REPORT INFORMATION
  Report Type: 
  Country: None (occurrence: None)
  Receive Date: 20040315
  Receipt Date: 20040305
  Transmission Date: 20041129
  Serious: Yes (Death, Other)
  Sender: FDA-Public Use
  Company Number: 2004-02-1427

PATIENT
  Sex: Male

DRUGS (2)
  1. PEG-INTRON (PEGINTERFERFON ALFA-2B) INJECTABLE POWDER [Suspect]
     Dosage: 150 MCG SUBCUTANEOUS
     Route: 058
  2. REBETOL [Suspect]
     Dosage: ORAL
     Route: 048

REACTIONS (2)
  - SUDDEN DEATH [None]
  - VENTRICULAR ARRHYTHMIA [None]
